FAERS Safety Report 4851662-6 (Version None)
Quarter: 2005Q4

REPORT INFORMATION
  Report Type: 
  Country: None (occurrence: None)
  Receive Date: 20051212
  Receipt Date: 20050729
  Transmission Date: 20060501
  Serious: Yes (Hospitalization, Disabling, Other)
  Sender: FDA-Public Use
  Company Number: PHFR2005GB02625

PATIENT
  Age: 65 Year
  Sex: Female
  Weight: 88.5 kg

DRUGS (5)
  1. ZOMETA [Suspect]
     Indication: BREAST CANCER
     Dosage: 4MG/DAY
     Route: 042
     Dates: start: 20030801, end: 20031001
  2. AREDIA [Suspect]
     Indication: BREAST CANCER
     Dosage: 4MG/MONTH
     Route: 042
     Dates: start: 20020101, end: 20021101
  3. TAMOXIFEN [Concomitant]
     Route: 065
     Dates: start: 20020201, end: 20030401
  4. ARIMIDEX [Concomitant]
     Route: 065
     Dates: start: 20030401, end: 20041101
  5. EXEMESTANE [Concomitant]
     Dosage: UNK, UNK
     Route: 065
     Dates: start: 20041101

REACTIONS (7)
  - BLOOD CALCIUM DECREASED [None]
  - OSTEONECROSIS [None]
  - PAIN [None]
  - SURGERY [None]
  - SWELLING [None]
  - TOOTH ABSCESS [None]
  - TOOTH EXTRACTION [None]
